FAERS Safety Report 11054186 (Version 2)
Quarter: 2015Q2

REPORT INFORMATION
  Report Type: Spontaneous
  Country: AU (occurrence: None)
  Receive Date: 20150415
  Receipt Date: 20150427
  Transmission Date: 20150821
  Serious: Yes (Other)
  Sender: FDA-Public Use
  Company Number: 2015-4352

PATIENT
  Age: 52 Year
  Sex: Female

DRUGS (2)
  1. BOTULINUM TOXIN TYPE A NOS (BOTULINUM TOOXIN TYPE A) (BOTULINUM TOXIN TYPE A) [Suspect]
     Active Substance: BOTULINUM TOXIN TYPE A
     Indication: PRODUCT USE ISSUE
     Dosage: 1 IN 1 CYCLE (S)
  2. BOTULINUM TOXIN TYPE A NOS (BOTULINUM TOOXIN TYPE A) (BOTULINUM TOXIN TYPE A) [Suspect]
     Active Substance: BOTULINUM TOXIN TYPE A
     Indication: SKIN WRINKLING
     Dosage: 1 IN 1 CYCLE (S)

REACTIONS (1)
  - Angle closure glaucoma [None]
